FAERS Safety Report 6127769-2 (Version None)
Quarter: 2009Q1

REPORT INFORMATION
  Report Type: 
  Country: None (occurrence: None)
  Receive Date: 20090323
  Receipt Date: 20090309
  Transmission Date: 20090719
  Serious: Yes (Death, Congenital Anomaly)
  Sender: FDA-Public Use
  Company Number: FR-JNJFOC-20090304402

PATIENT

DRUGS (3)
  1. KETOCONAZOLE [Suspect]
     Indication: DRUG EXPOSURE DURING PREGNANCY
     Route: 064
     Dates: start: 19860721, end: 19870804
  2. VITAMINS AND MINERALS [Suspect]
     Indication: DRUG EXPOSURE DURING PREGNANCY
     Route: 064
  3. BEPANTHENE [Suspect]
     Indication: DRUG EXPOSURE DURING PREGNANCY
     Route: 064

REACTIONS (7)
  - CLINODACTYLY [None]
  - CONGENITAL FOOT MALFORMATION [None]
  - CONGENITAL GASTRIC ANOMALY [None]
  - DYSMORPHISM [None]
  - LIMB REDUCTION DEFECT [None]
  - RETROGNATHIA [None]
  - STILLBIRTH [None]
